FAERS Safety Report 7917527-8 (Version None)
Quarter: 2011Q4

REPORT INFORMATION
  Report Type: 
  Country: None (occurrence: None)
  Receive Date: 20111114
  Receipt Date: 20111031
  Transmission Date: 20120403
  Serious: Yes (Other)
  Sender: FDA-Public Use
  Company Number: B0761603A

PATIENT
  Age: 66 Year
  Sex: Female

DRUGS (2)
  1. ANTICOAGULANT [Concomitant]
  2. FONDAPARINUX SODIUM [Suspect]
     Indication: COAGULOPATHY
     Dosage: 7 MG SINGLE DOSE, SUBCUTANEOUS
     Route: 058

REACTIONS (1)
  - ATRIAL THROMBOSIS [None]
